FAERS Safety Report 10762701 (Version 3)
Quarter: 2015Q2

REPORT INFORMATION
  Report Type: Spontaneous
  Country: US (occurrence: US)
  Receive Date: 20150204
  Receipt Date: 20150602
  Transmission Date: 20150821
  Serious: Yes (Hospitalization, Other)
  Sender: FDA-Public Use
  Company Number: US-BAYER-2015-014079

PATIENT
  Age: 49 Year
  Sex: Female

DRUGS (3)
  1. AVONEX [Concomitant]
     Active Substance: INTERFERON BETA-1A
     Dosage: 30 ?G, OW
     Route: 030
     Dates: start: 20121027
  2. AVONEX [Concomitant]
     Active Substance: INTERFERON BETA-1A
     Dosage: 30 ?G, OW
     Route: 030
     Dates: start: 20110819, end: 20120522
  3. BETASERON [Suspect]
     Active Substance: INTERFERON BETA-1B
     Indication: MULTIPLE SCLEROSIS
     Route: 065

REACTIONS (11)
  - Agraphia [Not Recovered/Not Resolved]
  - Injection site pain [None]
  - Asthenia [Recovered/Resolved]
  - Musculoskeletal disorder [None]
  - Abasia [None]
  - Injection site erythema [None]
  - Drug hypersensitivity [None]
  - Injection site mass [Not Recovered/Not Resolved]
  - Multiple sclerosis relapse [Not Recovered/Not Resolved]
  - Fall [Recovered/Resolved]
  - Injection site swelling [None]

NARRATIVE: CASE EVENT DATE: 2012
